FAERS Safety Report 13377218 (Version 1)
Quarter: 2017Q1

REPORT INFORMATION
  Report Type: Spontaneous
  Country: US (occurrence: US)
  Receive Date: 20170328
  Receipt Date: 20170328
  Transmission Date: 20170429
  Serious: No
  Sender: FDA-Public Use
  Company Number: US-PERRIGO-16US017028

PATIENT
  Age: 56 Year
  Sex: Female

DRUGS (2)
  1. ALL OTHER THERAPEUTIC PRODUCTS [Suspect]
     Active Substance: UNSPECIFIED INGREDIENT
     Indication: PRODUCT USED FOR UNKNOWN INDICATION
     Dosage: UNK
     Route: 065
     Dates: start: 2016
  2. NYSTATIN. [Suspect]
     Active Substance: NYSTATIN
     Indication: URTICARIA
     Dosage: LIBERAL AMOUNT, SINGLE
     Route: 061
     Dates: start: 20160605, end: 20160605

REACTIONS (3)
  - Expired product administered [Recovered/Resolved]
  - Mood swings [Not Recovered/Not Resolved]
  - Off label use [Recovered/Resolved]

NARRATIVE: CASE EVENT DATE: 20160605
